FAERS Safety Report 13511504 (Version 2)
Quarter: 2017Q3

REPORT INFORMATION
  Report Type: Report from Study
  Country: None (occurrence: US)
  Receive Date: 20170503
  Receipt Date: 20170809
  Transmission Date: 20171127
  Serious: Yes (Hospitalization)
  Sender: FDA-Public Use
  Company Number: US-ABBVIE-17K-163-1959605-00

PATIENT
  Age: 49 Year
  Sex: Female
  Weight: 105.33 kg

DRUGS (1)
  1. HUMIRA [Suspect]
     Active Substance: ADALIMUMAB
     Indication: RHEUMATOID ARTHRITIS
     Route: 058
     Dates: start: 20170301, end: 201707

REACTIONS (8)
  - Mood altered [Not Recovered/Not Resolved]
  - Drug ineffective [Unknown]
  - Vertigo [Not Recovered/Not Resolved]
  - Rheumatoid arthritis [Not Recovered/Not Resolved]
  - Nausea [Not Recovered/Not Resolved]
  - Dizziness [Not Recovered/Not Resolved]
  - Loss of consciousness [Unknown]
  - Middle ear effusion [Unknown]

NARRATIVE: CASE EVENT DATE: 2017
